FAERS Safety Report 7851334 (Version 5)
Quarter: 2012Q4

REPORT INFORMATION
  Report Type: 
  Country: US (occurrence: US)
  Receive Date: 20110310
  Receipt Date: 20121009
  Transmission Date: 20130627
  Serious: Yes (Hospitalization, Disabling, Other)
  Sender: FDA-Public Use
  Company Number: US-009507513-1103USA00946

PATIENT

DRUGS (10)
  1. FOSAMAX [Suspect]
     Indication: OSTEOPOROSIS
     Dosage: 70 mg, qw
     Route: 048
     Dates: start: 20041203, end: 20051207
  2. FOSAMAX [Suspect]
     Indication: OSTEOPENIA
     Dosage: 70 mg, qw
     Route: 048
     Dates: start: 20060411, end: 20070427
  3. ALENDRONATE SODIUM [Suspect]
     Indication: OSTEOPOROSIS
     Dosage: 70 mg, qw
     Route: 048
     Dates: start: 20080428, end: 20100209
  4. FLAXSEED [Concomitant]
     Dosage: 1000 mg, qd
     Dates: start: 2000
  5. OMEGA-3 [Concomitant]
     Dosage: 1000 mg, bid
     Dates: start: 2000
  6. CALCIUM (UNSPECIFIED) (+) VITAMIN D (UNSPECIFIED) [Concomitant]
     Dosage: 500 mg, bid
     Dates: start: 2000
  7. VITAMIN D (UNSPECIFIED) [Concomitant]
     Dosage: 1000 mg, qd
     Dates: start: 2000
  8. CHONDROITIN SULFATE SODIUM (+) GLUCOSAMINE SULFATE [Concomitant]
     Indication: RHINITIS ALLERGIC
     Dosage: 1300 mg, bid
     Dates: start: 2000
  9. ALTACE [Concomitant]
     Indication: HYPERTENSION
     Dosage: 5 mg, qd
     Dates: start: 2002
  10. DESOWEN [Concomitant]
     Indication: LICHEN SCLEROSUS

REACTIONS (20)
  - Femur fracture [Unknown]
  - Stress fracture [Unknown]
  - Femur fracture [Unknown]
  - Low turnover osteopathy [Unknown]
  - Leukocytosis [Unknown]
  - Anaemia [Recovering/Resolving]
  - Osteoporosis [Unknown]
  - Constipation [Unknown]
  - Osteoarthritis [Unknown]
  - Cataract [Unknown]
  - Cough [Unknown]
  - Macular degeneration [Unknown]
  - Palpitations [Unknown]
  - Hypertension [Unknown]
  - Anaphylactic reaction [Unknown]
  - Abdominal pain upper [Unknown]
  - Muscle spasms [Unknown]
  - Musculoskeletal pain [Unknown]
  - Flatulence [Recovering/Resolving]
  - Drug ineffective [Unknown]
